FAERS Safety Report 12572191 (Version 2)
Quarter: 2016Q3

REPORT INFORMATION
  Report Type: Report from Study
  Country: US (occurrence: US)
  Receive Date: 20160719
  Receipt Date: 20160822
  Transmission Date: 20161109
  Serious: Yes (Disabling, Other)
  Sender: FDA-Public Use
  Company Number: US-GILEAD-2016-0198800

PATIENT
  Age: 78 Year
  Sex: Male

DRUGS (1)
  1. RANOLAZINE [Suspect]
     Active Substance: RANOLAZINE
     Indication: ANGINA PECTORIS
     Dosage: 500 MG, UNK
     Route: 048

REACTIONS (2)
  - Blood test abnormal [Unknown]
  - Dialysis [Not Recovered/Not Resolved]

NARRATIVE: CASE EVENT DATE: 20160605
